FAERS Safety Report 12800353 (Version 1)
Quarter: 2016Q3

REPORT INFORMATION
  Report Type: Spontaneous
  Country: None (occurrence: US)
  Receive Date: 20160930
  Receipt Date: 20160930
  Transmission Date: 20161109
  Serious: No
  Sender: FDA-Public Use
  Company Number: US-MEDAC PHARMA, INC.-1057894

PATIENT
  Age: 63 Year
  Sex: Female
  Weight: 88.64 kg

DRUGS (15)
  1. CETIRIZINE [Concomitant]
     Active Substance: CETIRIZINE HYDROCHLORIDE
  2. OMEPRAZOLE. [Concomitant]
     Active Substance: OMEPRAZOLE
  3. HYDROXYCHLOROQUINE SULFATE. [Concomitant]
     Active Substance: HYDROXYCHLOROQUINE SULFATE
  4. OSCAL [Concomitant]
     Active Substance: CALCIUM CARBONATE
  5. FOLIC ACID. [Concomitant]
     Active Substance: FOLIC ACID
  6. FERREX 150 FORTE [Concomitant]
     Active Substance: CYANOCOBALAMIN\FOLIC ACID\IRON
  7. PROAIR HFA [Concomitant]
     Active Substance: ALBUTEROL SULFATE
  8. PREDNISONE. [Concomitant]
     Active Substance: PREDNISONE
  9. CYCLOBENZAPRINE HYDROCHLORIDE. [Concomitant]
     Active Substance: CYCLOBENZAPRINE HYDROCHLORIDE
  10. ADVAIR DISKUS [Concomitant]
     Active Substance: FLUTICASONE PROPIONATE\SALMETEROL XINAFOATE
  11. RASUVO [Suspect]
     Active Substance: METHOTREXATE SODIUM
     Indication: RHEUMATOID ARTHRITIS
     Dates: start: 2016
  12. VITAMIN B COMPLEX [Concomitant]
     Active Substance: CYANOCOBALAMIN\DEXPANTHENOL\NIACINAMIDE\PYRIDOXINE HYDROCHLORIDE\RIBOFLAVIN 5^-PHOSPHATE SODIUM\THIAMINE HYDROCHLORIDE\VITAMIN B COMPLEX
  13. OXYCODONE HYDCHLORIDE [Concomitant]
     Active Substance: OXYCODONE HYDROCHLORIDE
  14. SULFASALAZINE. [Concomitant]
     Active Substance: SULFASALAZINE
  15. ZOLPIDEM [Concomitant]
     Active Substance: ZOLPIDEM\ZOLPIDEM TARTRATE

REACTIONS (3)
  - Device issue [Recovered/Resolved]
  - Arthralgia [Unknown]
  - Accidental exposure to product [Recovered/Resolved]

NARRATIVE: CASE EVENT DATE: 20160831
